FAERS Safety Report 7494070-4 (Version None)
Quarter: 2011Q2

REPORT INFORMATION
  Report Type: 
  Country: None (occurrence: None)
  Receive Date: 20110520
  Receipt Date: 20110519
  Transmission Date: 20111010
  Serious: Yes (Death, Other)
  Sender: FDA-Public Use
  Company Number: AU-ABBOTT-11P-008-0726803-00

PATIENT
  Sex: Male

DRUGS (1)
  1. HUMIRA [Suspect]
     Indication: PSORIASIS
     Dates: start: 20101130

REACTIONS (3)
  - PULMONARY EMBOLISM [None]
  - FOOT OPERATION [None]
  - DEEP VEIN THROMBOSIS [None]
